FAERS Safety Report 18873029 (Version 1)
Quarter: 2021Q1

REPORT INFORMATION
  Report Type: Spontaneous
  Country: NZ (occurrence: NZ)
  Receive Date: 20210210
  Receipt Date: 20210210
  Transmission Date: 20210420
  Serious: Yes (Other)
  Sender: FDA-Public Use
  Company Number: None

PATIENT
  Age: 7 Year
  Sex: Male
  Weight: 23 kg

DRUGS (3)
  1. SERETIDE [Concomitant]
     Active Substance: FLUTICASONE PROPIONATE\SALMETEROL XINAFOATE
  2. RESPIGEN [Concomitant]
  3. SINGULAIR [Suspect]
     Active Substance: MONTELUKAST SODIUM
     Indication: ASTHMA

REACTIONS (12)
  - Autism spectrum disorder [None]
  - Trichotillomania [None]
  - Condition aggravated [None]
  - Abnormal behaviour [None]
  - Pollakiuria [None]
  - Mental disorder [None]
  - Anger [None]
  - Anxiety [None]
  - Enuresis [None]
  - Obsessive-compulsive disorder [None]
  - Insomnia [None]
  - Nightmare [None]

NARRATIVE: CASE EVENT DATE: 20120109
